FAERS Safety Report 6192471-8 (Version None)
Quarter: 2009Q2

REPORT INFORMATION
  Report Type: 
  Country: None (occurrence: None)
  Receive Date: 20090514
  Receipt Date: 20090514
  Transmission Date: 20091009
  Serious: Yes (Other)
  Sender: FDA-Public Use
  Company Number: None

PATIENT
  Sex: Male

DRUGS (1)
  1. PROPOFOL [Suspect]
     Indication: OESOPHAGOGASTRODUODENOSCOPY
     Dosage: 80 MG ONCE IV
     Route: 042
     Dates: start: 20090505

REACTIONS (1)
  - DELIRIUM [None]
